FAERS Safety Report 7661025-6 (Version None)
Quarter: 2011Q3

REPORT INFORMATION
  Report Type: 
  Country: None (occurrence: None)
  Receive Date: 20110805
  Receipt Date: 20101011
  Transmission Date: 20111222
  Serious: No
  Sender: FDA-Public Use
  Company Number: US-ABBOTT-10P-163-0677446-00

PATIENT
  Sex: Female
  Weight: 76.272 kg

DRUGS (6)
  1. CLARITIN [Concomitant]
     Indication: PRODUCT USED FOR UNKNOWN INDICATION
  2. NIASPAN [Suspect]
     Indication: HIGH DENSITY LIPOPROTEIN DECREASED
     Dates: start: 20100903
  3. NIASPAN [Suspect]
     Dosage: AT NIGHT
     Dates: start: 20101001
  4. FISH OIL [Concomitant]
     Indication: PRODUCT USED FOR UNKNOWN INDICATION
  5. MVT [Concomitant]
     Indication: PRODUCT USED FOR UNKNOWN INDICATION
  6. NATURAL HORMONE COMPOUND [Concomitant]
     Indication: PRODUCT USED FOR UNKNOWN INDICATION

REACTIONS (5)
  - NAUSEA [None]
  - PARAESTHESIA [None]
  - FLUSHING [None]
  - FEELING HOT [None]
  - HEADACHE [None]
